FAERS Safety Report 14138097 (Version 2)
Quarter: 2017Q4

REPORT INFORMATION
  Report Type: Spontaneous
  Country: JP (occurrence: JP)
  Receive Date: 20171027
  Receipt Date: 20171204
  Transmission Date: 20180321
  Serious: Yes (Other)
  Sender: FDA-Public Use
  Company Number: JP-TEVA-819219ROM

PATIENT
  Age: 99 Year
  Sex: Female

DRUGS (8)
  1. VIVIANT [Concomitant]
     Active Substance: BAZEDOXIFENE
     Route: 065
  2. GANATON [Concomitant]
     Active Substance: ITOPRIDE
     Route: 065
  3. MUCOSOLVAN [Concomitant]
     Active Substance: AMBROXOL HYDROCHLORIDE
     Route: 065
  4. ARICEPT [Concomitant]
     Active Substance: DONEPEZIL HYDROCHLORIDE
     Route: 065
  5. BENET [Suspect]
     Active Substance: RISEDRONATE SODIUM
     Indication: OSTEOPOROSIS
     Route: 048
     Dates: start: 20150317
  6. PLAVIX [Concomitant]
     Active Substance: CLOPIDOGREL BISULFATE
     Route: 065
  7. MAGNESIUM OXIDE. [Concomitant]
     Active Substance: MAGNESIUM OXIDE
     Route: 065
  8. LIPITOR [Concomitant]
     Active Substance: ATORVASTATIN CALCIUM
     Route: 065

REACTIONS (3)
  - Femoral neck fracture [Recovered/Resolved]
  - Otorrhoea [Recovered/Resolved]
  - Otorrhoea [Recovering/Resolving]

NARRATIVE: CASE EVENT DATE: 20160509
